FAERS Safety Report 12311542 (Version 4)
Quarter: 2016Q2

REPORT INFORMATION
  Report Type: Report from Study
  Country: US (occurrence: US)
  Receive Date: 20160427
  Receipt Date: 20160629
  Transmission Date: 20160815
  Serious: Yes (Hospitalization)
  Sender: FDA-Public Use
  Company Number: US-BIOGEN-2016BI00227554

PATIENT
  Age: 39 Year
  Sex: Male
  Weight: 106.69 kg

DRUGS (9)
  1. AVONEX [Suspect]
     Active Substance: INTERFERON BETA-1A
     Route: 030
     Dates: start: 20160407, end: 20160407
  2. AVONEX [Suspect]
     Active Substance: INTERFERON BETA-1A
     Dosage: HALF DOSE
     Route: 065
  3. AVONEX [Suspect]
     Active Substance: INTERFERON BETA-1A
     Indication: MULTIPLE SCLEROSIS
     Route: 030
     Dates: start: 20160324, end: 20160324
  4. AVONEX [Suspect]
     Active Substance: INTERFERON BETA-1A
     Route: 030
     Dates: start: 20160414
  5. AVONEX [Suspect]
     Active Substance: INTERFERON BETA-1A
     Route: 030
     Dates: start: 20160331, end: 20160331
  6. AVONEX [Suspect]
     Active Substance: INTERFERON BETA-1A
     Dosage: FULL DOSE
     Route: 065
  7. AVONEX [Suspect]
     Active Substance: INTERFERON BETA-1A
     Route: 030
     Dates: start: 20160310
  8. AVONEX [Suspect]
     Active Substance: INTERFERON BETA-1A
     Dosage: ONE FOURTH DOSE
     Route: 065
     Dates: start: 20160315
  9. AVONEX [Suspect]
     Active Substance: INTERFERON BETA-1A
     Dosage: THREE FOURTH DOSE
     Route: 065

REACTIONS (5)
  - Trigeminal neuralgia [Recovered/Resolved]
  - Multiple sclerosis [Recovered/Resolved]
  - Back pain [Recovered/Resolved]
  - Headache [Recovered/Resolved]
  - Migraine [Unknown]

NARRATIVE: CASE EVENT DATE: 20160419
